FAERS Safety Report 10065472 (Version 2)
Quarter: 2014Q2

REPORT INFORMATION
  Report Type: Spontaneous
  Country: IT (occurrence: IT)
  Receive Date: 20140408
  Receipt Date: 20140414
  Transmission Date: 20141212
  Serious: Yes (Other)
  Sender: FDA-Public Use
  Company Number: PHHY2014IT041462

PATIENT
  Age: 66 Year
  Sex: Female

DRUGS (13)
  1. EXELON [Suspect]
     Dosage: 3 MG, UNK
  2. EXELON [Suspect]
     Dosage: 4.5 MG, UNK
  3. CYMBALTA [Suspect]
     Dosage: 60 MG, BID
     Route: 048
  4. CYMBALTA [Suspect]
     Dosage: 60 MG, DAILY
     Route: 048
     Dates: start: 20130927
  5. SEROQUEL [Suspect]
     Dosage: 25 MG, UNK
  6. SEROQUEL [Suspect]
     Dosage: 125 MG, DAY
     Route: 048
  7. SEROQUEL [Suspect]
     Dosage: UNK
  8. EBIXA [Suspect]
     Dosage: 20 MG, DAILY
     Route: 048
  9. TOPAMAX [Suspect]
     Dosage: 100 MG, DAILY
     Route: 048
  10. TOPAMAX [Suspect]
     Dosage: 23 MG, UNK
     Route: 048
  11. TOPAMAX [Suspect]
     Dosage: 37.5 MG QD
     Route: 048
  12. CARDIOASPIRIN [Suspect]
     Dosage: UNK
  13. TRIATEC [Suspect]
     Indication: HYPERTENSION
     Dosage: 1 DF PRN

REACTIONS (14)
  - Agnosia [Unknown]
  - Dementia Alzheimer^s type [Unknown]
  - Drug interaction [Unknown]
  - Clonus [Unknown]
  - Psychotic behaviour [Unknown]
  - Dysstasia [Unknown]
  - Psychomotor hyperactivity [Unknown]
  - Convulsion [Unknown]
  - Anxiety [Unknown]
  - Partial seizures [Unknown]
  - Tonic convulsion [Unknown]
  - Agitation [Unknown]
  - Confusional state [Unknown]
  - Hallucination [Unknown]
